FAERS Safety Report 18605424 (Version 1)
Quarter: 2020Q4

REPORT INFORMATION
  Report Type: Spontaneous
  Country: CN (occurrence: CN)
  Receive Date: 20201211
  Receipt Date: 20201211
  Transmission Date: 20210114
  Serious: Yes (Other)
  Sender: FDA-Public Use
  Company Number: CN-ASTRAZENECA-2020SF64190

PATIENT
  Age: 40 Year
  Sex: Female

DRUGS (2)
  1. PULMICORT TURBUHALER [Suspect]
     Active Substance: BUDESONIDE
     Indication: PULMONARY FUNCTION TEST
     Route: 055
     Dates: start: 20201126, end: 20201126
  2. IPRATROPIUM BROMIDE. [Concomitant]
     Active Substance: IPRATROPIUM BROMIDE
     Indication: BRONCHIECTASIS
     Route: 055
     Dates: start: 20201126, end: 20201126

REACTIONS (4)
  - Myalgia [Recovering/Resolving]
  - Tremor [Recovered/Resolved]
  - Dyspnoea [Recovered/Resolved]
  - Asphyxia [Recovering/Resolving]

NARRATIVE: CASE EVENT DATE: 20201126
